FAERS Safety Report 14629795 (Version 1)
Quarter: 2018Q1

REPORT INFORMATION
  Report Type: Report from Study
  Country: GB (occurrence: GB)
  Receive Date: 20180313
  Receipt Date: 20180313
  Transmission Date: 20180509
  Serious: Yes (Other)
  Sender: FDA-Public Use
  Company Number: GB-ROCHE-1876991

PATIENT
  Sex: Female

DRUGS (3)
  1. ROACTEMRA [Suspect]
     Active Substance: TOCILIZUMAB
     Indication: RHEUMATOID ARTHRITIS
     Dosage: 162 MG/0.9 ML
     Route: 058
     Dates: start: 20160901
  2. ROACTEMRA [Suspect]
     Active Substance: TOCILIZUMAB
     Route: 058
     Dates: start: 20180222
  3. ROACTEMRA [Suspect]
     Active Substance: TOCILIZUMAB
     Route: 058
     Dates: start: 20160825

REACTIONS (16)
  - Dyspnoea [Unknown]
  - Nausea [Unknown]
  - Facial pain [Unknown]
  - Headache [Unknown]
  - Toothache [Unknown]
  - Oropharyngeal pain [Unknown]
  - Chest pain [Unknown]
  - Skin infection [Unknown]
  - Cardiac disorder [Unknown]
  - Fatigue [Unknown]
  - Cortisol increased [Unknown]
  - Immunosuppression [Unknown]
  - Body tinea [Unknown]
  - Malaise [Unknown]
  - Blood test abnormal [Unknown]
  - Blood cholesterol increased [Unknown]
